FAERS Safety Report 25544465 (Version 1)
Quarter: 2025Q3

REPORT INFORMATION
  Report Type: Spontaneous
  Country: US (occurrence: US)
  Receive Date: 20250711
  Receipt Date: 20250711
  Transmission Date: 20251020
  Serious: Yes (Death, Hospitalization, Other)
  Sender: PURDUE
  Company Number: US-PURDUE PHARMA-USA-2025-0318817

PATIENT
  Sex: Male

DRUGS (2)
  1. OXYCONTIN [Suspect]
     Active Substance: OXYCODONE HYDROCHLORIDE
     Indication: Pain
     Route: 048
     Dates: start: 2014
  2. OXYCONTIN [Suspect]
     Active Substance: OXYCODONE HYDROCHLORIDE
     Dosage: 1 STRONGER DOSE EVERY 6 HOURS AND ONE MILDER DOSE IN BETWEEN, THE 6 HOUR DOSE
     Route: 048
     Dates: start: 2017, end: 2017

REACTIONS (7)
  - Salmonellosis [Fatal]
  - Cardiac disorder [Fatal]
  - Aortic rupture [Unknown]
  - Road traffic accident [Unknown]
  - Emotional distress [Unknown]
  - General physical health deterioration [Unknown]
  - Pain [Unknown]

NARRATIVE: CASE EVENT DATE: 20170101
